FAERS Safety Report 11010603 (Version 1)
Quarter: 2015Q2

REPORT INFORMATION
  Report Type: Spontaneous
  Country: HR (occurrence: HR)
  Receive Date: 20150410
  Receipt Date: 20150410
  Transmission Date: 20150821
  Serious: Yes (Other)
  Sender: FDA-Public Use
  Company Number: HR-PFIZER INC-2015123163

PATIENT
  Age: 63 Year
  Sex: Male
  Weight: 110 kg

DRUGS (1)
  1. CYKLOKAPRON [Suspect]
     Active Substance: TRANEXAMIC ACID
     Indication: HAEMORRHAGE PROPHYLAXIS
     Dosage: 1 G, 2X/DAY (1 G BEFORE AND 1 G AFTER SURGERY)
     Route: 042
     Dates: start: 20140417, end: 20140417

REACTIONS (4)
  - Chest pain [Recovered/Resolved]
  - Dyspnoea [Recovered/Resolved]
  - Cold sweat [Recovered/Resolved]
  - Off label use [Unknown]

NARRATIVE: CASE EVENT DATE: 20140417
